FAERS Safety Report 4363539-3 (Version None)
Quarter: 2004Q2

REPORT INFORMATION
  Report Type: 
  Country: None (occurrence: None)
  Receive Date: 20040517
  Receipt Date: 20040316
  Transmission Date: 20050107
  Serious: No
  Sender: FDA-Public Use
  Company Number: S04-USA-01701-01

PATIENT
  Age: 83 Year
  Sex: Female

DRUGS (9)
  1. NAMENDA [Suspect]
     Indication: DEMENTIA
     Dosage: 10 MG BID PO
     Route: 048
     Dates: start: 20040302
  2. NAMENDA [Suspect]
     Indication: DEMENTIA
     Dates: end: 20040301
  3. LOMOTIL [Concomitant]
  4. BENTYL [Concomitant]
  5. SINEMET [Concomitant]
  6. ZYPREXA [Concomitant]
  7. RITALIN [Concomitant]
  8. ACTONEL [Concomitant]
  9. XALATAN [Concomitant]

REACTIONS (2)
  - DECREASED APPETITE [None]
  - SOMNOLENCE [None]
